FAERS Safety Report 9915722 (Version 3)
Quarter: 2014Q2

REPORT INFORMATION
  Report Type: Spontaneous
  Country: IT (occurrence: None)
  Receive Date: 20140218
  Receipt Date: 20140619
  Transmission Date: 20141212
  Serious: Yes (Death, Hospitalization)
  Sender: FDA-Public Use
  Company Number: AUR-APL-2014-01657

PATIENT
  Age: 62 Year
  Sex: Female

DRUGS (1)
  1. AMOXICILLINA TABLETS 1G (AMOXICILLIN) TABLET, 1G [Suspect]
     Indication: TOOTHACHE
     Dosage: 2 GM, 1 D, ORAL
     Route: 048
     Dates: start: 20140127, end: 20140129

REACTIONS (1)
  - Bronchospasm [None]
